FAERS Safety Report 12452710 (Version 1)
Quarter: 2016Q2

REPORT INFORMATION
  Report Type: Spontaneous
  Country: ES (occurrence: ES)
  Receive Date: 20160609
  Receipt Date: 20160609
  Transmission Date: 20160815
  Serious: Yes (Hospitalization, Other)
  Sender: FDA-Public Use
  Company Number: ES-SCIEGEN PHARMACEUTICALS INC-2016SCILIT00159

PATIENT
  Age: 51 Year
  Sex: Female

DRUGS (6)
  1. CLOPIDOGREL [Suspect]
     Active Substance: CLOPIDOGREL BISULFATE
     Indication: CEREBROVASCULAR ACCIDENT
     Dosage: UNK
     Route: 065
  2. INSULIN [Suspect]
     Active Substance: INSULIN NOS
     Indication: PRODUCT USED FOR UNKNOWN INDICATION
     Dosage: UNK
     Route: 065
  3. ACETYLSALICYLIC ACID [Suspect]
     Active Substance: ASPIRIN
     Indication: PRODUCT USED FOR UNKNOWN INDICATION
     Dosage: 500 MG, UNK
     Route: 065
  4. LOW MOLECULAR-WEIGHT HEPARIN (NADROPARIN CALCIUM) [Suspect]
     Active Substance: NADROPARIN CALCIUM
     Indication: PRODUCT USED FOR UNKNOWN INDICATION
     Dosage: 0.6 ML, QD
     Route: 058
  5. ATORVASTATIN [Suspect]
     Active Substance: ATORVASTATIN
     Indication: PRODUCT USED FOR UNKNOWN INDICATION
     Dosage: 20 MG, UNK
     Route: 065
  6. ATORVASTATIN [Suspect]
     Active Substance: ATORVASTATIN
     Dosage: 80 MG, UNK
     Route: 065

REACTIONS (13)
  - Hypoaesthesia [Unknown]
  - Hemiparesis [Unknown]
  - Extensor plantar response [Unknown]
  - Dysphagia [Unknown]
  - Arteriosclerosis [Unknown]
  - Hyperglycaemia [Unknown]
  - Microangiopathy [Unknown]
  - Paresis [Unknown]
  - Dysarthria [Unknown]
  - Left atrial dilatation [Unknown]
  - Hypertension [Unknown]
  - Lateral medullary syndrome [Unknown]
  - Ventricular hypertrophy [Unknown]
